FAERS Safety Report 23201758 (Version 1)
Quarter: 2023Q4

REPORT INFORMATION
  Report Type: Spontaneous
  Country: CA (occurrence: CA)
  Receive Date: 20231120
  Receipt Date: 20231120
  Transmission Date: 20240110
  Serious: Yes (Other)
  Sender: FDA-Public Use
  Company Number: CA-GLAXOSMITHKLINE-CA2023AMR121544

PATIENT

DRUGS (13)
  1. BENLYSTA [Suspect]
     Active Substance: BELIMUMAB
     Indication: Systemic lupus erythematosus
     Dosage: 630 MG, Q4W
     Route: 042
  2. BENLYSTA [Suspect]
     Active Substance: BELIMUMAB
     Dosage: 630 MG, Q4W
     Route: 042
  3. BENLYSTA [Suspect]
     Active Substance: BELIMUMAB
     Indication: Systemic lupus erythematosus
     Dosage: 100 MG, Q4W
     Dates: start: 20230818
  4. BENLYSTA [Suspect]
     Active Substance: BELIMUMAB
     Dosage: UNK
  5. TYLENOL [Concomitant]
     Active Substance: ACETAMINOPHEN
     Indication: Headache
     Dosage: 650 MG
     Route: 048
  6. TYLENOL [Concomitant]
     Active Substance: ACETAMINOPHEN
     Indication: Pericarditis
     Dosage: 1000 MG, QD
     Route: 048
     Dates: start: 20231110, end: 20231110
  7. GRAVOL [Concomitant]
     Active Substance: DIMENHYDRINATE
     Indication: Nausea
     Dosage: UNK; 50 MH IV
     Route: 042
  8. GRAVOL [Concomitant]
     Active Substance: DIMENHYDRINATE
     Indication: Brain fog
     Dosage: 50 MG
     Route: 042
     Dates: start: 20231110, end: 20231110
  9. ONDANSETRON [Concomitant]
     Active Substance: ONDANSETRON
     Dosage: 8 MG, QD
     Route: 048
     Dates: start: 20231110, end: 20231110
  10. PREDNISONE [Concomitant]
     Active Substance: PREDNISONE
     Indication: Product used for unknown indication
     Dosage: 27.5 MG
  11. CODEINE [Concomitant]
     Active Substance: CODEINE
     Indication: Product used for unknown indication
     Dosage: UNK
     Dates: start: 20231103
  12. METHOTREXATE [Concomitant]
     Active Substance: METHOTREXATE
     Indication: Product used for unknown indication
     Dosage: 25 MG
     Route: 058
  13. HYDROXYCHLOROQUINE [Concomitant]
     Active Substance: HYDROXYCHLOROQUINE
     Indication: Product used for unknown indication
     Dosage: 300 MG, BID

REACTIONS (8)
  - Pericarditis [Unknown]
  - Headache [Recovering/Resolving]
  - Nausea [Recovering/Resolving]
  - Depressed mood [Unknown]
  - Brain fog [Unknown]
  - Feeling abnormal [Unknown]
  - Drug intolerance [Unknown]
  - Product use issue [Unknown]

NARRATIVE: CASE EVENT DATE: 20231103
